FAERS Safety Report 8893013 (Version 2)
Quarter: 2013Q2

REPORT INFORMATION
  Report Type: Spontaneous
  Country: US (occurrence: None)
  Receive Date: 20121101
  Receipt Date: 20130403
  Transmission Date: 20140414
  Serious: Yes (Death)
  Sender: FDA-Public Use
  Company Number: ADR-2012-01995

PATIENT
  Age: 42 Year
  Sex: Female

DRUGS (1)
  1. BACLOFEN INTRATHECAL (BACLOFEN INJECTION) [Suspect]
     Indication: CANCER PAIN
     Dosage: SEE B5

REACTIONS (2)
  - Glioblastoma [None]
  - Malignant neoplasm progression [None]
